FAERS Safety Report 13461009 (Version 1)
Quarter: 2017Q2

REPORT INFORMATION
  Report Type: Spontaneous
  Country: US (occurrence: US)
  Receive Date: 20170419
  Receipt Date: 20170419
  Transmission Date: 20170830
  Serious: Yes (Other)
  Sender: FDA-Public Use
  Company Number: None

PATIENT
  Age: 67 Year
  Sex: Male
  Weight: 110.2 kg

DRUGS (10)
  1. VITAMIN D3 [Concomitant]
     Active Substance: CHOLECALCIFEROL
  2. SOLGAR SAW PALMETTO [Concomitant]
  3. RAMAPRIL [Concomitant]
  4. WELCHOL [Concomitant]
     Active Substance: COLESEVELAM HYDROCHLORIDE
  5. METFORMIN [Concomitant]
     Active Substance: METFORMIN HYDROCHLORIDE
  6. GRAPESEED EXTRACT [Concomitant]
  7. CONTRAVE [Suspect]
     Active Substance: BUPROPION HYDROCHLORIDE\NALTREXONE HYDROCHLORIDE
     Indication: WEIGHT DECREASED
     Dosage: ?          QUANTITY:2 TABLET(S);?
     Route: 048
     Dates: start: 20170406, end: 20170419
  8. ZETIA [Concomitant]
     Active Substance: EZETIMIBE
  9. ASPIRIN. [Concomitant]
     Active Substance: ASPIRIN
  10. SOLGAR V75 VITAMIN W/O IRON [Concomitant]

REACTIONS (7)
  - Insomnia [None]
  - Impaired driving ability [None]
  - Nervousness [None]
  - Wrong technique in product usage process [None]
  - Fatigue [None]
  - Headache [None]
  - Irritability [None]

NARRATIVE: CASE EVENT DATE: 20170419
